FAERS Safety Report 20678492 (Version 2)
Quarter: 2022Q2

REPORT INFORMATION
  Report Type: Spontaneous
  Country: US (occurrence: US)
  Receive Date: 20220406
  Receipt Date: 20220503
  Transmission Date: 20220721
  Serious: No
  Sender: FDA-Public Use
  Company Number: US-GSKCCFUS-Case-01340666_AE-77808

PATIENT
  Sex: Female

DRUGS (1)
  1. BREO ELLIPTA [Suspect]
     Active Substance: FLUTICASONE FUROATE\VILANTEROL TRIFENATATE
     Indication: Asthma
     Dosage: 1 PUFF(S), QD,100/25MCG
     Route: 055
     Dates: start: 2020

REACTIONS (5)
  - Chest pain [Recovered/Resolved]
  - Dyspnoea [Unknown]
  - Wrong technique in device usage process [Unknown]
  - Drug ineffective [Unknown]
  - Product complaint [Unknown]
